FAERS Safety Report 19381080 (Version 1)
Quarter: 2021Q2

REPORT INFORMATION
  Report Type: Spontaneous
  Country: DE (occurrence: DE)
  Receive Date: 20210607
  Receipt Date: 20210607
  Transmission Date: 20210717
  Serious: Yes (Hospitalization, Other)
  Sender: FDA-Public Use
  Company Number: DE-BAUSCH-BL-2021-019418

PATIENT
  Sex: Male

DRUGS (2)
  1. PREDNISOLONE. [Suspect]
     Active Substance: PREDNISOLONE
     Indication: GRAFT VERSUS HOST DISEASE
     Route: 065
     Dates: start: 2019
  2. RUXOLITINIB [Suspect]
     Active Substance: RUXOLITINIB
     Indication: GRAFT VERSUS HOST DISEASE
     Route: 065
     Dates: start: 2019

REACTIONS (6)
  - Urosepsis [Unknown]
  - Off label use [Unknown]
  - Acute graft versus host disease [Unknown]
  - Diabetes mellitus [Unknown]
  - Hydronephrosis [Unknown]
  - Benign prostatic hyperplasia [Unknown]
